FAERS Safety Report 4677385-4 (Version None)
Quarter: 2005Q2

REPORT INFORMATION
  Report Type: 
  Country: None (occurrence: None)
  Receive Date: 20050526
  Receipt Date: 20050526
  Transmission Date: 20051028
  Serious: Yes (Other)
  Sender: FDA-Public Use
  Company Number: None

PATIENT
  Sex: Female
  Weight: 83.9154 kg

DRUGS (2)
  1. ESTRADIOL [Suspect]
     Indication: HORMONE LEVEL ABNORMAL
     Dosage: 0.05 MG
     Dates: start: 20040801
  2. ESTRADIOL [Suspect]
     Indication: MENOPAUSE
     Dosage: 0.05 MG
     Dates: start: 20040801

REACTIONS (2)
  - HYPERSENSITIVITY [None]
  - RASH [None]
